FAERS Safety Report 6243942-7 (Version None)
Quarter: 2009Q2

REPORT INFORMATION
  Report Type: 
  Country: None (occurrence: None)
  Receive Date: 20090623
  Receipt Date: 20090611
  Transmission Date: 20091009
  Serious: No
  Sender: FDA-Public Use
  Company Number: US024199

PATIENT
  Sex: Female

DRUGS (5)
  1. FENTORA [Suspect]
     Indication: ARTHRALGIA
     Dosage: (800 MCG), BU
  2. FENTORA [Suspect]
     Indication: CROHN'S DISEASE
     Dosage: (800 MCG), BU
  3. ACTIQ [Concomitant]
  4. FENTANYL (FENTANYL) (POULTICE OR PATCH) [Concomitant]
  5. OTFC (ORAL TRANSMUCOSAL FENTANYL CITRATE) (GENERIC ACTIQ) [Concomitant]

REACTIONS (2)
  - DRUG PRESCRIBING ERROR [None]
  - MEDICATION ERROR [None]
